FAERS Safety Report 8595540-8 (Version None)
Quarter: 2012Q3

REPORT INFORMATION
  Report Type: 
  Country: None (occurrence: None)
  Receive Date: 20120801
  Receipt Date: 20120717
  Transmission Date: 20120928
  Serious: Yes (Death, Other)
  Sender: FDA-Public Use
  Company Number: TPA2012A02929

PATIENT
  Age: 70 Year
  Sex: Male
  Weight: 84.369 kg

DRUGS (8)
  1. METFORMIN HCL [Concomitant]
  2. INSULIN [Concomitant]
  3. INSULIN [Concomitant]
  4. SITAGLIPTIN PHOSPHATE [Concomitant]
  5. ACTOS [Suspect]
     Indication: TYPE 2 DIABETES MELLITUS
     Dates: start: 20020604, end: 20080101
  6. METFORMIN HCL [Concomitant]
  7. GLIPIZIDE [Concomitant]
  8. TROGLITAZONE [Concomitant]

REACTIONS (1)
  - BLADDER CANCER [None]
